FAERS Safety Report 4773752-9 (Version None)
Quarter: 2005Q3

REPORT INFORMATION
  Report Type: 
  Country: None (occurrence: None)
  Receive Date: 20050920
  Receipt Date: 20050909
  Transmission Date: 20060218
  Serious: Yes (Death)
  Sender: FDA-Public Use
  Company Number: IT-BRISTOL-MYERS SQUIBB COMPANY-13106737

PATIENT
  Age: 22 Year
  Sex: Female

DRUGS (5)
  1. ABILIFY [Suspect]
     Dates: start: 20050101
  2. QUETIAPINE FUMARATE [Concomitant]
  3. TOPIRAMATE [Concomitant]
  4. BENZODIAZEPINES [Concomitant]
  5. SEROTONIN REUPTAKE INHIBITORS [Concomitant]

REACTIONS (1)
  - COMPLETED SUICIDE [None]
